FAERS Safety Report 4620734-3 (Version None)
Quarter: 2005Q1

REPORT INFORMATION
  Report Type: 
  Country: None (occurrence: None)
  Receive Date: 20050325
  Receipt Date: 20050311
  Transmission Date: 20050727
  Serious: Yes (Hospitalization, Other)
  Sender: FDA-Public Use
  Company Number: USA-2003-0010604

PATIENT
  Age: 71 Year
  Sex: Female
  Weight: 84.4 kg

DRUGS (19)
  1. OXYCONTIN [Suspect]
     Indication: PAIN
     Dosage: SEE IMAGE
  2. COLACE CAPSULES (DOCUSATE SODIUM) [Concomitant]
  3. PERCOCET [Concomitant]
  4. PHENOBARBITAL SODIUM 100MG CAP [Concomitant]
  5. CELEXA [Concomitant]
  6. CORRECTOL [Concomitant]
  7. BUSPAR [Concomitant]
  8. FLEXERIL [Concomitant]
  9. LASIX [Concomitant]
  10. K-DUR 10 [Concomitant]
  11. SYNTHROID [Concomitant]
  12. RITALIN [Concomitant]
  13. REMERON [Concomitant]
  14. PRILOSEC [Concomitant]
  15. ACCUPRIL [Concomitant]
  16. RISPERDAL [Concomitant]
  17. THIAMINE (THIAMINE) [Concomitant]
  18. AMBIEN [Concomitant]
  19. DUCOLAX [Concomitant]

REACTIONS (55)
  - ABDOMINAL PAIN UPPER [None]
  - ABDOMINAL TENDERNESS [None]
  - ACTIVITIES OF DAILY LIVING IMPAIRED [None]
  - AGITATION [None]
  - ANGINA PECTORIS [None]
  - ANHEDONIA [None]
  - ANXIETY [None]
  - APATHY [None]
  - ARTHRALGIA [None]
  - ASTHENIA [None]
  - BACK DISORDER [None]
  - BACK PAIN [None]
  - BONE PAIN [None]
  - CHEST DISCOMFORT [None]
  - CHEST PAIN [None]
  - CHEST WALL PAIN [None]
  - CONDITION AGGRAVATED [None]
  - DECREASED APPETITE [None]
  - DEPRESSED MOOD [None]
  - DEPRESSION [None]
  - DISTURBANCE IN ATTENTION [None]
  - DRUG ABUSER [None]
  - DRUG DEPENDENCE [None]
  - DRUG INEFFECTIVE [None]
  - DRUG TOLERANCE [None]
  - DRUG WITHDRAWAL SYNDROME [None]
  - DYSPEPSIA [None]
  - DYSPNOEA [None]
  - DYSURIA [None]
  - FIBROMYALGIA [None]
  - FLAT AFFECT [None]
  - GAIT DISTURBANCE [None]
  - HEADACHE [None]
  - HEARING IMPAIRED [None]
  - HEPATOMEGALY [None]
  - INADEQUATE ANALGESIA [None]
  - INSOMNIA [None]
  - MEDICATION ERROR [None]
  - MEMORY IMPAIRMENT [None]
  - MENTAL DISORDER [None]
  - MUSCLE SPASMS [None]
  - MUSCULOSKELETAL DISCOMFORT [None]
  - MYALGIA [None]
  - NECK PAIN [None]
  - OEDEMA PERIPHERAL [None]
  - ORTHOPNOEA [None]
  - OSTEOARTHRITIS [None]
  - PAIN [None]
  - PAIN IN EXTREMITY [None]
  - RESTLESSNESS [None]
  - SPINAL DISORDER [None]
  - TENDERNESS [None]
  - URINARY HESITATION [None]
  - URINARY TRACT INFECTION [None]
  - VARICOSE VEIN [None]
